FAERS Safety Report 5211116-4 (Version None)
Quarter: 2006Q4

REPORT INFORMATION
  Report Type: 
  Country: None (occurrence: None)
  Receive Date: 20061114
  Receipt Date: 20060718
  Transmission Date: 20070319
  Serious: No
  Sender: FDA-Public Use
  Company Number: S06-USA-02779-01

PATIENT
  Age: 69 Year
  Sex: Female

DRUGS (9)
  1. NAMENDA [Suspect]
     Indication: DEMENTIA
     Dosage: 10 MG BID PO
     Route: 048
     Dates: start: 20060615
  2. NAMENDA [Suspect]
     Indication: DEMENTIA
     Dosage: 5 MG QD PO
     Route: 048
     Dates: start: 20060525, end: 20060531
  3. NAMENDA [Suspect]
     Indication: DEMENTIA
     Dosage: 5 MG BID PO
     Route: 048
     Dates: start: 20060601, end: 20060607
  4. NAMENDA [Suspect]
     Indication: DEMENTIA
     Dosage: 15 MG QD PO
     Route: 048
     Dates: start: 20060608, end: 20060614
  5. ARICEPT [Concomitant]
  6. EVISTA [Concomitant]
  7. VESICARE [Concomitant]
  8. ASPIRIN [Concomitant]
  9. VITAMINS NOS [Concomitant]

REACTIONS (3)
  - ENERGY INCREASED [None]
  - FEELING ABNORMAL [None]
  - INSOMNIA [None]
